FAERS Safety Report 18835769 (Version 1)
Quarter: 2021Q1

REPORT INFORMATION
  Report Type: Spontaneous
  Country: JP (occurrence: JP)
  Receive Date: 20210203
  Receipt Date: 20210203
  Transmission Date: 20210419
  Serious: Yes (Life-Threatening)
  Sender: FDA-Public Use
  Company Number: JP-009507513-2101JPN002883J

PATIENT
  Age: 74 Year
  Sex: Male
  Weight: 55 kg

DRUGS (9)
  1. APREPITANT. [Concomitant]
     Active Substance: APREPITANT
     Dosage: UNK
     Route: 048
  2. PRIMPERAN [Concomitant]
     Active Substance: METOCLOPRAMIDE HYDROCHLORIDE
     Dosage: UNK
     Route: 048
  3. ABRAXANE [Suspect]
     Active Substance: PACLITAXEL
     Indication: SQUAMOUS CELL CARCINOMA OF LUNG
     Dosage: 100 MILLIGRAM/DAY
     Route: 042
     Dates: start: 20200702
  4. DECADRON [Concomitant]
     Active Substance: DEXAMETHASONE
     Dosage: UNK
     Route: 048
  5. TELMISARTAN. [Concomitant]
     Active Substance: TELMISARTAN
     Dosage: UNK
     Route: 048
  6. CARBOPLATIN. [Suspect]
     Active Substance: CARBOPLATIN
     Indication: SQUAMOUS CELL CARCINOMA OF LUNG
     Dosage: 300 MILLIGRAM/DAY
     Route: 042
     Dates: start: 20200702
  7. ALOXI [Concomitant]
     Active Substance: PALONOSETRON HYDROCHLORIDE
     Dosage: UNK
     Route: 051
  8. KEYTRUDA [Suspect]
     Active Substance: PEMBROLIZUMAB
     Indication: SQUAMOUS CELL CARCINOMA OF LUNG
     Dosage: 200 MILLIGRAM
     Route: 041
     Dates: start: 20200702
  9. OMEPRAZOLE. [Concomitant]
     Active Substance: OMEPRAZOLE
     Dosage: UNK
     Route: 048

REACTIONS (1)
  - Tumour lysis syndrome [Recovering/Resolving]

NARRATIVE: CASE EVENT DATE: 20200709
